FAERS Safety Report 9012339 (Version 2)
Quarter: 2012Q4

REPORT INFORMATION
  Report Type: Spontaneous
  Country: GB (occurrence: None)
  Receive Date: 20121231
  Receipt Date: 20121231
  Transmission Date: 20130627
  Serious: Yes (Hospitalization)
  Sender: FDA-Public Use
  Company Number: 2012-22880

PATIENT
  Age: 74 Year
  Sex: Female

DRUGS (15)
  1. MIRTAZAPINE (UNKNOWN) [Suspect]
     Indication: DEPRESSION
     Dosage: Intitial dose 45mg, then reduced to 30mg, Oral
     Dates: start: 20121106
  2. MORPHINE (MORPHINE) (UNKNOWN) (MORPHINE) [Concomitant]
  3. SPIRONOLACTONE (SPIRONOLACTONE) [Concomitant]
  4. SERTRALIN (FLUTICASONE PROPIONATE, SALMETEROL XINAFOATE) [Concomitant]
  5. VENTOLIN /00139501/ (SALBUTEROL) [Concomitant]
  6. RANITIDINE (RANITIDINE) [Concomitant]
  7. QUNINE (QUININE) [Concomitant]
  8. PARACETAMOL (PARACETAMOL) [Concomitant]
  9. ISOSORBIDE MONONITRATE (ISOSORBIDE MONONITRATE) [Concomitant]
  10. GLYCERYL TRINITRATE (GLYCERYL TRINITRATE) [Concomitant]
  11. GABAPENTIN (GABAPENTIN) [Concomitant]
  12. ACETYLSALICYLIC ACID (ACETYLSALICYLIC ACID) [Concomitant]
  13. ADCAL /00056901/ (CARBAZOCHROME) [Concomitant]
  14. EZETIMIBE (EZETIMIBE) [Concomitant]
  15. BISOPROLOL (BISOPROLOL) [Concomitant]

REACTIONS (1)
  - Restless legs syndrome [None]
